FAERS Safety Report 7522521-5 (Version None)
Quarter: 2011Q2

REPORT INFORMATION
  Report Type: 
  Country: None (occurrence: None)
  Receive Date: 20110603
  Receipt Date: 20110531
  Transmission Date: 20111010
  Serious: Yes (Hospitalization, Other)
  Sender: FDA-Public Use
  Company Number: US-PFIZER INC-2011118590

PATIENT
  Sex: Male

DRUGS (1)
  1. CHANTIX [Suspect]
     Dosage: UNK
     Dates: start: 20090212

REACTIONS (7)
  - DEPRESSION [None]
  - AGITATION [None]
  - INTENTIONAL SELF-INJURY [None]
  - MOOD ALTERED [None]
  - AGGRESSION [None]
  - ABNORMAL DREAMS [None]
  - ABNORMAL BEHAVIOUR [None]
